FAERS Safety Report 14150735 (Version 1)
Quarter: 2017Q4

REPORT INFORMATION
  Report Type: Spontaneous
  Country: BR (occurrence: BR)
  Receive Date: 20171102
  Receipt Date: 20171102
  Transmission Date: 20180321
  Serious: Yes (Hospitalization)
  Sender: FDA-Public Use
  Company Number: BR-ASTRAZENECA-2017SF09477

PATIENT
  Sex: Male

DRUGS (1)
  1. XIGDUO XR [Suspect]
     Active Substance: DAPAGLIFLOZIN PROPANEDIOL\METFORMIN HYDROCHLORIDE
     Dosage: 10 MG + 1000 MG
     Route: 048
     Dates: start: 201707, end: 201708

REACTIONS (2)
  - Glossitis [Unknown]
  - Balanitis candida [Not Recovered/Not Resolved]

NARRATIVE: CASE EVENT DATE: 2017
